FAERS Safety Report 8547802-8 (Version None)
Quarter: 2012Q3

REPORT INFORMATION
  Report Type: 
  Country: None (occurrence: None)
  Receive Date: 20120727
  Receipt Date: 20120224
  Transmission Date: 20120928
  Serious: Yes (Other)
  Sender: FDA-Public Use
  Company Number: US-ASTRAZENECA-2012SE05194

PATIENT
  Age: 53 Year
  Sex: Female
  Weight: 52.2 kg

DRUGS (18)
  1. CITALOPRAM HYDROBROMIDE [Concomitant]
     Indication: DEPRESSION
     Dosage: 40 MG, 1 AND HALF TABLET DAILY
     Route: 048
  2. SEROQUEL [Suspect]
     Indication: ANXIETY
     Route: 048
     Dates: start: 20050101
  3. BESPAR [Concomitant]
     Indication: ANXIETY
     Route: 048
     Dates: start: 20020217
  4. ALPRAZOLAM [Concomitant]
     Indication: PANIC ATTACK
     Route: 048
  5. SEROQUEL [Suspect]
     Indication: BIPOLAR DISORDER
     Route: 048
     Dates: start: 20050101
  6. SEROQUEL [Suspect]
     Indication: DEPRESSION
     Route: 048
     Dates: start: 20050101
  7. SEROQUEL [Suspect]
     Route: 048
     Dates: start: 20080101
  8. SEROQUEL [Suspect]
     Route: 048
     Dates: start: 20080101
  9. SEROQUEL [Suspect]
     Route: 048
  10. SEROQUEL [Suspect]
     Route: 048
  11. ALPRAZOLAM [Concomitant]
     Indication: ANXIETY
     Route: 048
  12. PROZAC [Concomitant]
     Indication: DEPRESSION
     Dates: start: 20120127
  13. SEROQUEL [Suspect]
     Indication: INSOMNIA
     Route: 048
     Dates: start: 20050101
  14. SEROQUEL [Suspect]
     Route: 048
     Dates: start: 20080101
  15. SEROQUEL [Suspect]
     Route: 048
     Dates: start: 20080101
  16. SEROQUEL [Suspect]
     Route: 048
  17. SEROQUEL [Suspect]
     Route: 048
  18. ATIVAN [Concomitant]
     Indication: ANXIETY
     Dates: start: 20120127

REACTIONS (12)
  - CHEST DISCOMFORT [None]
  - MAJOR DEPRESSION [None]
  - CRYING [None]
  - MOOD SWINGS [None]
  - BRONCHITIS [None]
  - ANXIETY [None]
  - SLEEP DISORDER [None]
  - SUICIDAL IDEATION [None]
  - PNEUMONIA [None]
  - OFF LABEL USE [None]
  - SINUSITIS [None]
  - HEAD INJURY [None]
